FAERS Safety Report 16817009 (Version 1)
Quarter: 2019Q3

REPORT INFORMATION
  Report Type: Spontaneous
  Country: US (occurrence: US)
  Receive Date: 20190917
  Receipt Date: 20190917
  Transmission Date: 20191005
  Serious: No
  Sender: FDA-Public Use
  Company Number: US-ALLERGAN-1937039US

PATIENT
  Sex: Female

DRUGS (1)
  1. LINZESS [Suspect]
     Active Substance: LINACLOTIDE
     Indication: PRODUCT USED FOR UNKNOWN INDICATION
     Dosage: 145 ?G
     Route: 065

REACTIONS (4)
  - Drug ineffective [Unknown]
  - Product availability issue [Unknown]
  - Product packaging quantity issue [Unknown]
  - Intentional product misuse [Unknown]
